FAERS Safety Report 21882709 (Version 1)
Quarter: 2023Q1

REPORT INFORMATION
  Report Type: Spontaneous
  Country: US (occurrence: US)
  Receive Date: 20230119
  Receipt Date: 20230119
  Transmission Date: 20230417
  Serious: Yes (Other)
  Sender: FDA-Public Use
  Company Number: US-SUN PHARMACEUTICAL INDUSTRIES LTD-2020R1-249938

PATIENT
  Age: 37 Year
  Sex: Male

DRUGS (3)
  1. METHIMAZOLE [Suspect]
     Active Substance: METHIMAZOLE
     Indication: Basedow^s disease
     Dosage: UNK
     Route: 065
  2. METHYLPREDNISOLONE [Suspect]
     Active Substance: METHYLPREDNISOLONE
     Indication: Product used for unknown indication
     Route: 065
  3. PROPYLTHIOURACIL [Interacting]
     Active Substance: PROPYLTHIOURACIL
     Indication: Basedow^s disease
     Route: 065

REACTIONS (3)
  - Hepatotoxicity [Unknown]
  - Drug interaction [Unknown]
  - Drug-induced liver injury [Unknown]
